FAERS Safety Report 20040721 (Version 1)
Quarter: 2021Q4

REPORT INFORMATION
  Report Type: Spontaneous
  Country: US (occurrence: None)
  Receive Date: 20211108
  Receipt Date: 20211108
  Transmission Date: 20220304
  Serious: Yes (Other)
  Sender: FDA-Public Use
  Company Number: None

PATIENT
  Age: 80 Year
  Sex: Female
  Weight: 74.25 kg

DRUGS (22)
  1. HIZENTRA [Suspect]
     Active Substance: HUMAN IMMUNOGLOBULIN G
     Indication: Immunodeficiency common variable
     Dosage: FREQUENCY : EVERY OTHER WEEK;?
     Route: 058
  2. ALTABAX [Concomitant]
  3. BACTRIM [Concomitant]
  4. CALTRATE 600+D [Concomitant]
  5. CARAFATE [Concomitant]
  6. Centrum Silver [Concomitant]
  7. Clobetasol Proprionate 0.05% [Concomitant]
  8. CRESTOR [Concomitant]
  9. CYMBALTA [Concomitant]
  10. Diclofenac Sodium 1% [Concomitant]
  11. Effexor XR [Concomitant]
  12. FENOFIBRATE [Concomitant]
  13. GABAPENTIN [Concomitant]
     Active Substance: GABAPENTIN
  14. KEFLEX [Concomitant]
     Active Substance: CEPHALEXIN
  15. LEXAPRO [Concomitant]
  16. Lisinopril-Hydrochlorothiazide [Concomitant]
  17. METOPROLOL SUCCINATE [Concomitant]
  18. Mucienex DM [Concomitant]
  19. NITROGLYCERIN [Concomitant]
  20. NYSTATIN [Concomitant]
     Active Substance: NYSTATIN
  21. PREDNISONE [Concomitant]
     Active Substance: PREDNISONE
  22. SYNTHROID [Concomitant]

REACTIONS (4)
  - Erythema [None]
  - Burning sensation [None]
  - Pain [None]
  - Infusion related reaction [None]

NARRATIVE: CASE EVENT DATE: 20211028
